FAERS Safety Report 20207398 (Version 1)
Quarter: 2021Q4

REPORT INFORMATION
  Report Type: Spontaneous
  Country: CN (occurrence: CN)
  Receive Date: 20211220
  Receipt Date: 20211220
  Transmission Date: 20220303
  Serious: Yes (Other)
  Sender: FDA-Public Use
  Company Number: CN-PFIZER INC-202101741328

PATIENT
  Age: 4 Year
  Sex: Female
  Weight: 16.5 kg

DRUGS (2)
  1. AZITHROMYCIN [Suspect]
     Active Substance: AZITHROMYCIN
     Indication: Anti-infective therapy
     Dosage: 0.16 G, 1X/DAY
     Route: 041
     Dates: start: 20211020, end: 20211021
  2. DEXTROSE [Concomitant]
     Active Substance: DEXTROSE
     Indication: Vehicle solution use
     Dosage: 250 ML, 1X/DAY
     Route: 041
     Dates: start: 20211020, end: 20211021

REACTIONS (2)
  - Drug hypersensitivity [Recovering/Resolving]
  - Rash rubelliform [Recovering/Resolving]

NARRATIVE: CASE EVENT DATE: 20211021
